FAERS Safety Report 17228765 (Version 2)
Quarter: 2020Q1

REPORT INFORMATION
  Report Type: Report from Study
  Country: None (occurrence: CA)
  Receive Date: 20200103
  Receipt Date: 20200123
  Transmission Date: 20200409
  Serious: Yes (Other)
  Sender: FDA-Public Use
  Company Number: CA-ABBVIE-20K-028-3218392-00

PATIENT
  Age: 33 Year
  Sex: Female

DRUGS (1)
  1. HUMIRA [Suspect]
     Active Substance: ADALIMUMAB
     Indication: RHEUMATOID ARTHRITIS
     Route: 058
     Dates: start: 20190321, end: 20191209

REACTIONS (9)
  - Loss of consciousness [Recovering/Resolving]
  - Diarrhoea [Unknown]
  - Malaise [Unknown]
  - Dehydration [Unknown]
  - Sleep apnoea syndrome [Unknown]
  - Vomiting [Recovering/Resolving]
  - Influenza [Not Recovered/Not Resolved]
  - Dizziness [Recovering/Resolving]
  - Nausea [Recovering/Resolving]

NARRATIVE: CASE EVENT DATE: 2019
